FAERS Safety Report 15284361 (Version 2)
Quarter: 2018Q3

REPORT INFORMATION
  Report Type: Spontaneous
  Country: US (occurrence: US)
  Receive Date: 20180816
  Receipt Date: 20180907
  Transmission Date: 20181010
  Serious: Yes (Other)
  Sender: FDA-Public Use
  Company Number: US-PFIZER INC-2018329871

PATIENT
  Age: 45 Year
  Sex: Male

DRUGS (3)
  1. EFFEXOR XR [Suspect]
     Active Substance: VENLAFAXINE HYDROCHLORIDE
     Indication: GENERALISED ANXIETY DISORDER
     Dosage: 75 MG, 1X/DAY (EVENING)
     Dates: start: 2000
  2. TOPROL XL [Concomitant]
     Active Substance: METOPROLOL SUCCINATE
     Dosage: UNK
  3. EFFEXOR XR [Suspect]
     Active Substance: VENLAFAXINE HYDROCHLORIDE
     Dosage: 10 MG, DAILY

REACTIONS (6)
  - Drug intolerance [Unknown]
  - Withdrawal syndrome [Unknown]
  - Drug dependence [Not Recovered/Not Resolved]
  - Sexual dysfunction [Unknown]
  - Depression [Unknown]
  - Abnormal dreams [Unknown]

NARRATIVE: CASE EVENT DATE: 2000
